FAERS Safety Report 5759883-5 (Version None)
Quarter: 2008Q2

REPORT INFORMATION
  Report Type: 
  Country: None (occurrence: None)
  Receive Date: 20080605
  Receipt Date: 20080602
  Transmission Date: 20081010
  Serious: Yes (Life-Threatening, Other)
  Sender: FDA-Public Use
  Company Number: PHEH2008US04988

PATIENT
  Sex: Male

DRUGS (3)
  1. DIOVAN HCT [Suspect]
     Indication: HYPERTENSION
     Dosage: 160 MG VAL/12.5 MG HCT QAM
     Dates: start: 20020101
  2. DIOVAN HCT [Suspect]
     Dosage: 160 MG VAL/12.5 MG HCT BID
  3. TOPROL-XL [Suspect]
     Indication: HYPERTENSION
     Dosage: 20 MG, QHS
     Dates: start: 20040101

REACTIONS (5)
  - CEREBROVASCULAR ACCIDENT [None]
  - DIZZINESS [None]
  - PNEUMONIA PRIMARY ATYPICAL [None]
  - PULMONARY EMBOLISM [None]
  - PULMONARY OEDEMA [None]
